FAERS Safety Report 9322634 (Version 1)
Quarter: 2013Q2

REPORT INFORMATION
  Report Type: Spontaneous
  Country: US (occurrence: US)
  Receive Date: 20130531
  Receipt Date: 20130531
  Transmission Date: 20140414
  Serious: Yes (Other)
  Sender: FDA-Public Use
  Company Number: US-ALLERGAN-1307760US

PATIENT
  Sex: Male

DRUGS (1)
  1. OZURDEX [Suspect]
     Indication: UVEITIS
     Dosage: 0.7 MG, SINGLE
     Route: 031

REACTIONS (5)
  - Eye haemorrhage [Unknown]
  - Post procedural haemorrhage [Unknown]
  - Adverse event [Unknown]
  - Complication of device insertion [Unknown]
  - Retinal detachment [Unknown]
